FAERS Safety Report 4744750-6 (Version None)
Quarter: 2005Q3

REPORT INFORMATION
  Report Type: 
  Country: None (occurrence: None)
  Receive Date: 20050815
  Receipt Date: 20050808
  Transmission Date: 20060218
  Serious: Yes (Other)
  Sender: FDA-Public Use
  Company Number: PHBS2005CA11604

PATIENT
  Sex: Female

DRUGS (1)
  1. FEMARA [Suspect]
     Indication: INFERTILITY FEMALE
     Route: 065
     Dates: start: 20010101, end: 20020101

REACTIONS (1)
  - BREAST CANCER FEMALE [None]
